FAERS Safety Report 6170949-0 (Version None)
Quarter: 2009Q2

REPORT INFORMATION
  Report Type: 
  Country: None (occurrence: None)
  Receive Date: 20090427
  Receipt Date: 20090427
  Transmission Date: 20091009
  Serious: Yes (Hospitalization)
  Sender: FDA-Public Use
  Company Number: None

PATIENT
  Sex: Female
  Weight: 49.9 kg

DRUGS (11)
  1. AMPHOTERICIN B [Suspect]
     Indication: INFECTION
     Dosage: 40MG IV DAILY
     Route: 042
     Dates: start: 20081028, end: 20081101
  2. LACTULOSE [Concomitant]
  3. LORAZEPAM [Concomitant]
  4. LANSOPRAZOLE [Concomitant]
  5. INSULIN [Concomitant]
  6. CEFAZOLIN [Concomitant]
  7. VANCOMYCIN HCL [Concomitant]
  8. CEFEPIME [Concomitant]
  9. PHYTONADIONE [Concomitant]
  10. HYDROMORPHONE HCL [Concomitant]
  11. . [Concomitant]

REACTIONS (1)
  - BLOOD CREATININE ABNORMAL [None]
